FAERS Safety Report 13227375 (Version 4)
Quarter: 2017Q3

REPORT INFORMATION
  Report Type: Spontaneous
  Country: US (occurrence: US)
  Receive Date: 20170213
  Receipt Date: 20170731
  Transmission Date: 20171127
  Serious: Yes (Death, Hospitalization)
  Sender: FDA-Public Use
  Company Number: US-BIOMARINAP-US-2017-112805

PATIENT
  Age: 13 Year
  Sex: Male
  Weight: 25.5 kg

DRUGS (3)
  1. ALDURAZYME [Suspect]
     Active Substance: LARONIDASE
     Dosage: 0.58 MG/KG, QW
     Route: 041
     Dates: start: 2017, end: 2017
  2. FLONASE [Concomitant]
     Active Substance: FLUTICASONE PROPIONATE
     Indication: PRODUCT USED FOR UNKNOWN INDICATION
  3. ALDURAZYME [Suspect]
     Active Substance: LARONIDASE
     Indication: MUCOPOLYSACCHARIDOSIS I
     Dosage: 0.58 MG/KG, QW
     Route: 041
     Dates: start: 20060626, end: 20170131

REACTIONS (7)
  - Ocular hyperaemia [Recovered/Resolved]
  - Disease complication [Fatal]
  - Pyrexia [Recovered/Resolved]
  - Swelling [Not Recovered/Not Resolved]
  - Chills [Recovered/Resolved]
  - Rhinovirus infection [Not Recovered/Not Resolved]
  - Tremor [Recovered/Resolved]

NARRATIVE: CASE EVENT DATE: 20170718
